FAERS Safety Report 5825628-3 (Version None)
Quarter: 2008Q3

REPORT INFORMATION
  Report Type: 
  Country: None (occurrence: None)
  Receive Date: 20080729
  Receipt Date: 20080718
  Transmission Date: 20090109
  Serious: Yes (Hospitalization)
  Sender: FDA-Public Use
  Company Number: B0529879A

PATIENT
  Age: 90 Year
  Sex: Male

DRUGS (9)
  1. ALKERAN [Suspect]
     Dosage: 6TAB PER DAY
     Route: 048
     Dates: start: 20080416, end: 20080419
  2. THALIDOMIDE [Suspect]
     Dosage: 100MG PER DAY
     Route: 048
     Dates: start: 20080416
  3. SOLUPRED [Suspect]
     Dosage: 80MG PER DAY
     Route: 048
     Dates: start: 20080416, end: 20080419
  4. ZOPICLONE [Suspect]
     Indication: DRUG USE FOR UNKNOWN INDICATION
     Route: 048
     Dates: start: 20080407
  5. AMLODIPINE [Suspect]
     Indication: DRUG USE FOR UNKNOWN INDICATION
     Route: 048
     Dates: start: 20080412
  6. DEDROGYL [Suspect]
     Indication: DRUG USE FOR UNKNOWN INDICATION
     Route: 048
     Dates: start: 20080415
  7. OMEPRAZOLE [Suspect]
     Indication: DRUG USE FOR UNKNOWN INDICATION
     Route: 048
  8. PREVISCAN [Suspect]
     Indication: DRUG USE FOR UNKNOWN INDICATION
     Route: 048
  9. CIPRALAN [Concomitant]
     Route: 065

REACTIONS (3)
  - PHARYNGEAL ERYTHEMA [None]
  - PURPURA [None]
  - RASH MACULO-PAPULAR [None]
